FAERS Safety Report 21091298 (Version 2)
Quarter: 2022Q3

REPORT INFORMATION
  Report Type: Spontaneous
  Country: IT (occurrence: IT)
  Receive Date: 20220716
  Receipt Date: 20220802
  Transmission Date: 20221027
  Serious: Yes (Life-Threatening, Hospitalization, Other)
  Sender: FDA-Public Use
  Company Number: IT-MACLEODS PHARMA UK LTD-MAC2022036455

PATIENT

DRUGS (1)
  1. ESCITALOPRAM [Suspect]
     Active Substance: ESCITALOPRAM OXALATE
     Indication: Major depression
     Dosage: 10 MILLIGRAM, QD (FROM CONCEPTION TO THE WEEK BEFORE DELIVERY)
     Route: 065

REACTIONS (4)
  - Placental insufficiency [Recovered/Resolved]
  - Pre-eclampsia [Unknown]
  - Premature baby [Unknown]
  - Maternal exposure during pregnancy [Unknown]
